FAERS Safety Report 5452134-0 (Version None)
Quarter: 2007Q3

REPORT INFORMATION
  Report Type: 
  Country: None (occurrence: None)
  Receive Date: 20070912
  Receipt Date: 20070912
  Transmission Date: 20080115
  Serious: No
  Sender: FDA-Public Use
  Company Number: None

PATIENT

DRUGS (2)
  1. METHYLPREDNISOLONE ACETATE [Suspect]
     Dosage: 40 MG IM
     Route: 030
  2. METHYLPREDNISOLONE SODIUM SUCCINATE [Suspect]
     Dosage: 40 MG IV
     Route: 042

REACTIONS (2)
  - INTERCEPTED DRUG DISPENSING ERROR [None]
  - MEDICATION ERROR [None]
